FAERS Safety Report 9722728 (Version 1)
Quarter: 2013Q4

REPORT INFORMATION
  Report Type: Spontaneous
  Country: FR (occurrence: FR)
  Receive Date: 20131202
  Receipt Date: 20131202
  Transmission Date: 20140711
  Serious: Yes (Hospitalization)
  Sender: FDA-Public Use
  Company Number: FR-SA-2013SA121322

PATIENT
  Age: 1 Day
  Sex: Male
  Weight: 2.6 kg

DRUGS (4)
  1. STILNOX [Suspect]
     Indication: MATERNAL EXPOSURE TIMING UNSPECIFIED
     Route: 064
     Dates: end: 20130904
  2. CYMBALTA [Suspect]
     Indication: MATERNAL EXPOSURE TIMING UNSPECIFIED
     Dosage: STRENGTH: 60 MG
     Route: 064
     Dates: end: 201301
  3. CYMBALTA [Suspect]
     Indication: MATERNAL EXPOSURE TIMING UNSPECIFIED
     Dosage: STRENGTH: 60 MG
     Route: 064
     Dates: start: 2013, end: 20130904
  4. NALBUPHINE [Suspect]
     Indication: MATERNAL EXPOSURE TIMING UNSPECIFIED
     Dosage: STRENGTH: 20MG/2ML
     Route: 064
     Dates: start: 20130904, end: 20130904

REACTIONS (6)
  - Electroencephalogram abnormal [Unknown]
  - Exposure during pregnancy [Unknown]
  - Foetal growth restriction [Not Recovered/Not Resolved]
  - Hypotonia [Recovered/Resolved]
  - Tremor [Recovered/Resolved]
  - Withdrawal syndrome [Recovered/Resolved]
